FAERS Safety Report 13789404 (Version 3)
Quarter: 2017Q4

REPORT INFORMATION
  Report Type: Spontaneous
  Country: US (occurrence: US)
  Receive Date: 20170725
  Receipt Date: 20171031
  Transmission Date: 20180320
  Serious: No
  Sender: FDA-Public Use
  Company Number: US-PFIZER INC-2017319464

PATIENT
  Age: 68 Year
  Sex: Female

DRUGS (23)
  1. DOCETAXEL. [Suspect]
     Active Substance: DOCETAXEL
     Indication: BREAST CANCER FEMALE
     Dosage: 145-152 MG, EVERY 3 WEEKS, FIVE CYCLES
     Dates: start: 20150603, end: 20150826
  2. DOCETAXEL. [Suspect]
     Active Substance: DOCETAXEL
     Indication: CHEMOTHERAPY
     Dosage: 145-152 MG, EVERY 3 WEEKS, FIVE CYCLES
     Dates: start: 20150603, end: 20150826
  3. DOCETAXEL. [Suspect]
     Active Substance: DOCETAXEL
     Indication: BREAST CANCER FEMALE
  4. PROPAFENONE. [Concomitant]
     Active Substance: PROPAFENONE
     Dosage: UNK, REGULARLY
     Dates: start: 2010
  5. LISINOPRIL. [Concomitant]
     Active Substance: LISINOPRIL
     Dosage: UNK, REGULARLY
     Dates: start: 2010
  6. CARBOPLATIN. [Concomitant]
     Active Substance: CARBOPLATIN
     Indication: CHEMOTHERAPY
     Dosage: UNK
  7. PIOGLITAZONE. [Concomitant]
     Active Substance: PIOGLITAZONE
     Dosage: UNK, REGULARLY
     Dates: start: 2010
  8. DOCETAXEL. [Suspect]
     Active Substance: DOCETAXEL
     Indication: CHEMOTHERAPY
     Dosage: 145-152 MG, EVERY 3 WEEKS, FIVE CYCLES
     Dates: start: 20150603, end: 20150826
  9. DOCETAXEL. [Suspect]
     Active Substance: DOCETAXEL
     Indication: BREAST CANCER FEMALE
  10. ZOLPIDEM [Concomitant]
     Active Substance: ZOLPIDEM\ZOLPIDEM TARTRATE
     Dosage: UNK, REGULARLY
     Dates: start: 2010
  11. AMITRIPTYLINE [Concomitant]
     Active Substance: AMITRIPTYLINE
     Dosage: UNK, REGULARLY
     Dates: start: 2010
  12. LEVOTHYROXINE. [Concomitant]
     Active Substance: LEVOTHYROXINE
     Indication: HORMONE THERAPY
     Dosage: UNK, REGULARLY
     Dates: start: 2010
  13. VICTOZA [Concomitant]
     Active Substance: LIRAGLUTIDE
     Dosage: UNK, REGULARLY
     Dates: start: 2010
  14. TRAMADOL. [Concomitant]
     Active Substance: TRAMADOL
     Dosage: UNK, REGULARLY
     Dates: start: 2010
  15. DOCETAXEL. [Suspect]
     Active Substance: DOCETAXEL
     Indication: CHEMOTHERAPY
     Dosage: 145-152 MG, EVERY 3 WEEKS, FIVE CYCLES
     Dates: start: 20150603, end: 20150826
  16. DOCEFREZ [Suspect]
     Active Substance: DOCETAXEL ANHYDROUS
     Indication: BREAST CANCER FEMALE
  17. HERCEPTIN [Concomitant]
     Active Substance: TRASTUZUMAB
     Indication: CHEMOTHERAPY
     Dosage: UNK
  18. DOCEFREZ [Suspect]
     Active Substance: DOCETAXEL ANHYDROUS
     Indication: CHEMOTHERAPY
     Dosage: 145-152 MG, EVERY 3 WEEKS, FIVE CYCLES
     Dates: start: 20150603, end: 20150826
  19. INSULIN [Concomitant]
     Active Substance: INSULIN NOS
     Dosage: UNK, REGULARLY
     Dates: start: 2010
  20. DOCETAXEL. [Suspect]
     Active Substance: DOCETAXEL
     Indication: CHEMOTHERAPY
     Dosage: UNK
     Dates: start: 20140205, end: 20140409
  21. DOCETAXEL. [Suspect]
     Active Substance: DOCETAXEL
     Indication: BREAST CANCER FEMALE
  22. PARAPLATIN [Concomitant]
     Active Substance: CARBOPLATIN
     Indication: CHEMOTHERAPY
     Dosage: UNK
  23. TIMOLOL. [Concomitant]
     Active Substance: TIMOLOL
     Dosage: UNK, REGULARLY
     Dates: start: 2015

REACTIONS (5)
  - Madarosis [Recovered/Resolved]
  - Alopecia [Recovered/Resolved]
  - Hair texture abnormal [Recovered/Resolved]
  - Hair disorder [Recovered/Resolved]
  - Hair colour changes [Recovered/Resolved]

NARRATIVE: CASE EVENT DATE: 201606
